FAERS Safety Report 10687020 (Version 1)
Quarter: 2015Q1

REPORT INFORMATION
  Report Type: Report from Study
  Country: US (occurrence: US)
  Receive Date: 20150102
  Receipt Date: 20150102
  Transmission Date: 20150720
  Serious: Yes (Hospitalization)
  Sender: FDA-Public Use
  Company Number: US-009507513-1412USA013795

PATIENT
  Age: 73 Year
  Sex: Male
  Weight: 92.7 kg

DRUGS (3)
  1. VINCRISTINE SULFATE. [Suspect]
     Active Substance: VINCRISTINE SULFATE
     Indication: PLASMA CELL MYELOMA
     Dosage: 1.5 MG, Q 28 DAYS
     Route: 042
     Dates: start: 20140826, end: 20140923
  2. DECADRON [Suspect]
     Active Substance: DEXAMETHASONE
     Indication: PLASMA CELL MYELOMA
     Dosage: 4 MG, 4 DAYS ON AND 4 DAYS OFF
     Route: 048
     Dates: start: 20140826, end: 20141025
  3. DOXORUBICIN [Suspect]
     Active Substance: DOXORUBICIN
     Indication: PLASMA CELL MYELOMA
     Dosage: FORMULATION: LIPOSOMAL, 40 MG/M2, Q28 DAYS
     Route: 042
     Dates: start: 20140826, end: 20140923

REACTIONS (1)
  - Pyrexia [Not Recovered/Not Resolved]

NARRATIVE: CASE EVENT DATE: 20141110
